FAERS Safety Report 7498582-9 (Version None)
Quarter: 2011Q2

REPORT INFORMATION
  Report Type: 
  Country: None (occurrence: None)
  Receive Date: 20110524
  Receipt Date: 20110313
  Transmission Date: 20111010
  Serious: Yes (Hospitalization, Other)
  Sender: FDA-Public Use
  Company Number: US-BAYER-201012543NA

PATIENT
  Age: 18 Year
  Sex: Female
  Weight: 84.3 kg

DRUGS (5)
  1. YASMIN [Suspect]
     Indication: PRODUCT USED FOR UNKNOWN INDICATION
     Dosage: 1 DF (DAILY DOSE), QD, ORAL
     Route: 048
     Dates: start: 20040101
  2. HYDROCODONE BITARTRATE AND ACETAMINOPHEN [Concomitant]
     Dosage: UNK
     Dates: start: 20060801
  3. PROMETHAZINE [Concomitant]
     Dosage: 25 MG, UNK
     Dates: start: 20060801
  4. ACTOS [Concomitant]
     Dosage: 30 MG, QD
     Route: 048
  5. YAZ [Suspect]
     Indication: PRODUCT USED FOR UNKNOWN INDICATION
     Dosage: 1 DF (DAILY DOSE), QD, ORAL
     Route: 048
     Dates: start: 20040101

REACTIONS (6)
  - NAUSEA [None]
  - VOMITING [None]
  - ABDOMINAL PAIN [None]
  - GALLBLADDER INJURY [None]
  - CHOLELITHIASIS [None]
  - GALLBLADDER DISORDER [None]
